FAERS Safety Report 26038935 (Version 1)
Quarter: 2025Q4

REPORT INFORMATION
  Report Type: Spontaneous
  Country: EU (occurrence: EU)
  Receive Date: 20251113
  Receipt Date: 20251113
  Transmission Date: 20260117
  Serious: Yes (Hospitalization)
  Sender: TEVA
  Company Number: None

PATIENT
  Age: 32 Year
  Sex: Female
  Weight: 51 kg

DRUGS (3)
  1. CLORAZEPATE DIPOTASSIUM [Suspect]
     Active Substance: CLORAZEPATE DIPOTASSIUM
     Indication: Product used for unknown indication
     Dosage: CLORAZEPATE POTASSIUM
     Route: 048
  2. MIANSERIN [Suspect]
     Active Substance: MIANSERIN
     Indication: Product used for unknown indication
     Route: 048
  3. DOXYLAMINE [Suspect]
     Active Substance: DOXYLAMINE
     Indication: Product used for unknown indication
     Route: 048

REACTIONS (4)
  - Confusional state [Recovering/Resolving]
  - Somnolence [Recovering/Resolving]
  - Nausea [Recovering/Resolving]
  - Suicide attempt [Unknown]
